FAERS Safety Report 14586226 (Version 2)
Quarter: 2018Q4

REPORT INFORMATION
  Report Type: Report from Study
  Country: UG (occurrence: UG)
  Receive Date: 20180301
  Receipt Date: 20181207
  Transmission Date: 20190204
  Serious: Yes (Other)
  Sender: FDA-Public Use
  Company Number: UG-MYLANLABS-2018M1012525

PATIENT
  Age: 26 Year
  Sex: Female

DRUGS (1)
  1. TENOFOVIR DF/LAMIVUDINE/EFAVIRENZ TABLETS 300/300/600MG [Suspect]
     Active Substance: EFAVIRENZ\LAMIVUDINE\TENOFOVIR DISOPROXIL FUMARATE
     Indication: HIV INFECTION
     Dosage: 1 DF, UNK
     Route: 048
     Dates: start: 20170118

REACTIONS (3)
  - Maternal exposure during pregnancy [Recovered/Resolved]
  - Stillbirth [Recovered/Resolved]
  - Malaria [Unknown]

NARRATIVE: CASE EVENT DATE: 20170606
